FAERS Safety Report 8162365-7 (Version None)
Quarter: 2012Q1

REPORT INFORMATION
  Report Type: 
  Country: None (occurrence: None)
  Receive Date: 20120221
  Receipt Date: 20100210
  Transmission Date: 20120608
  Serious: Yes (Hospitalization, Other)
  Sender: FDA-Public Use
  Company Number: DSA_55124_2012

PATIENT
  Age: 62 Year
  Sex: Male

DRUGS (5)
  1. DILTIAZEM HYDROCHLORIDE [Suspect]
     Dosage: (240 MG QD)
  2. RANOLAZINE [Suspect]
     Indication: MYOCARDIAL ISCHAEMIA
     Dosage: (500 MG BID ORAL), (1000 MG BID ORAL)
     Route: 048
  3. ENALAPRIL MALEATE [Concomitant]
  4. PREDNISONE TAB [Concomitant]
  5. TACROLIMUS [Suspect]
     Indication: RENAL TRANSPLANT
     Dosage: (DF)
     Route: 048

REACTIONS (13)
  - NAUSEA [None]
  - TREMOR [None]
  - LETHARGY [None]
  - RESPIRATORY RATE DECREASED [None]
  - BLOOD CREATININE INCREASED [None]
  - BRADYCARDIA [None]
  - DIZZINESS [None]
  - DRUG INTERACTION [None]
  - FATIGUE [None]
  - URINE OUTPUT DECREASED [None]
  - RENAL FAILURE ACUTE [None]
  - DECREASED APPETITE [None]
  - TOXICITY TO VARIOUS AGENTS [None]
